FAERS Safety Report 10175209 (Version 1)
Quarter: 2014Q2

REPORT INFORMATION
  Report Type: Spontaneous
  Country: US (occurrence: US)
  Receive Date: 20140515
  Receipt Date: 20140515
  Transmission Date: 20141212
  Serious: No
  Sender: FDA-Public Use
  Company Number: US-VIVUS-2014V1000095

PATIENT
  Age: 46 Year
  Sex: Male
  Weight: 115.77 kg

DRUGS (4)
  1. QSYMIA 3.75MG/23MG [Suspect]
     Indication: WEIGHT DECREASED
     Route: 048
     Dates: start: 201311, end: 201311
  2. QSYMIA 7.5MG/46MG [Suspect]
     Indication: WEIGHT DECREASED
     Route: 048
     Dates: start: 201312
  3. LISINOPRIL/HCTZ [Concomitant]
     Indication: HYPERTENSION
     Dosage: 20MG/25MG
     Route: 048
     Dates: start: 2013
  4. LEVOTHYROXINE [Concomitant]
     Indication: THYROID DISORDER
     Route: 048
     Dates: start: 2011

REACTIONS (4)
  - Astigmatism [Recovered/Resolved]
  - Presbyopia [Unknown]
  - Erectile dysfunction [Not Recovered/Not Resolved]
  - Feeling abnormal [Recovering/Resolving]
